FAERS Safety Report 11247273 (Version 3)
Quarter: 2015Q4

REPORT INFORMATION
  Report Type: Spontaneous
  Country: US (occurrence: US)
  Receive Date: 20150708
  Receipt Date: 20151106
  Transmission Date: 20160304
  Serious: Yes (Death, Other)
  Sender: FDA-Public Use
  Company Number: US-PFIZER INC-2015221678

PATIENT
  Sex: Female

DRUGS (1)
  1. IBRANCE [Suspect]
     Active Substance: PALBOCICLIB
     Indication: BREAST CANCER METASTATIC
     Dosage: 125 MG, DAILY (FOR 21 DAYS)
     Route: 048

REACTIONS (4)
  - Anaemia [Recovering/Resolving]
  - Breast cancer metastatic [Fatal]
  - Neutropenia [Recovered/Resolved]
  - Disease progression [Fatal]
